FAERS Safety Report 9842096 (Version 1)
Quarter: 2014Q1

REPORT INFORMATION
  Report Type: Spontaneous
  Country: GB (occurrence: GB)
  Receive Date: 20140124
  Receipt Date: 20140124
  Transmission Date: 20141002
  Serious: Yes (Hospitalization)
  Sender: FDA-Public Use
  Company Number: GB-WATSON-2014-00549

PATIENT
  Age: 21 Year
  Sex: Female
  Weight: 55 kg

DRUGS (2)
  1. PROCHLORPERAZINE [Suspect]
     Indication: DIZZINESS
     Dosage: 1 DF, TID - ONE TABLET THREE TIMES A DAY
     Route: 048
     Dates: start: 20140104, end: 20140106
  2. METOCLOPRAMIDE [Suspect]
     Indication: MALAISE
     Dosage: 1 DF, TID - ONE TABLET THREE TIMES A DAY
     Route: 048
     Dates: start: 20140104, end: 20140106

REACTIONS (3)
  - Muscle spasms [Recovering/Resolving]
  - Eye movement disorder [Recovering/Resolving]
  - Bruxism [Recovering/Resolving]
